FAERS Safety Report 6000242-8 (Version None)
Quarter: 2008Q4

REPORT INFORMATION
  Report Type: 
  Country: None (occurrence: None)
  Receive Date: 20081215
  Receipt Date: 20081204
  Transmission Date: 20090506
  Serious: Yes (Hospitalization)
  Sender: FDA-Public Use
  Company Number: NL-JNJFOC-20070503150

PATIENT
  Sex: Male
  Weight: 76 kg

DRUGS (11)
  1. INFLIXIMAB, RECOMBINANT [Suspect]
     Route: 042
  2. INFLIXIMAB, RECOMBINANT [Suspect]
     Route: 042
  3. INFLIXIMAB, RECOMBINANT [Suspect]
     Route: 042
  4. INFLIXIMAB, RECOMBINANT [Suspect]
     Indication: ARTHRITIS
     Route: 042
  5. METHOTREXATE [Suspect]
     Indication: ARTHRITIS
  6. FOLIC ACID [Concomitant]
  7. NEXIUM [Concomitant]
  8. CALCICHEW D3 [Concomitant]
     Indication: NUTRITIONAL SUPPORT
  9. CITALOPRAM HYDROBROMIDE [Concomitant]
     Indication: DEPRESSION
  10. TEMAZEPAM [Concomitant]
     Indication: SLEEP DISORDER
  11. IBUPROFEN [Concomitant]
     Indication: PAIN

REACTIONS (2)
  - DIARRHOEA [None]
  - SEPTIC ARTHRITIS STAPHYLOCOCCAL [None]
